FAERS Safety Report 11131388 (Version 1)
Quarter: 2015Q2

REPORT INFORMATION
  Report Type: Spontaneous
  Country: PL (occurrence: PL)
  Receive Date: 20150522
  Receipt Date: 20150522
  Transmission Date: 20150821
  Serious: Yes (Hospitalization)
  Sender: FDA-Public Use
  Company Number: PHHY2015PL058023

PATIENT
  Age: 48 Year
  Sex: Female

DRUGS (20)
  1. DEXAMETHASONE. [Suspect]
     Active Substance: DEXAMETHASONE
     Dosage: 8 MG, ALMOST ONE YEAR
     Route: 048
  2. OXYCODONE [Concomitant]
     Active Substance: OXYCODONE
     Dosage: 40 MG, BID, (2 ? 40 MG)
     Route: 065
  3. GABAPENTIN. [Concomitant]
     Active Substance: GABAPENTIN
     Indication: PAIN
     Route: 065
  4. FENTANYL. [Suspect]
     Active Substance: FENTANYL
     Dosage: 100 UG/HR, UNK
     Route: 062
  5. BUPRENORPHINE [Concomitant]
     Active Substance: BUPRENORPHINE
     Indication: PAIN
     Dosage: 105 UG/HR, UNK
     Route: 062
     Dates: start: 201403
  6. FENTANYL. [Suspect]
     Active Substance: FENTANYL
     Dosage: 100 UNK, UNK
  7. DEXAMETHASONE. [Suspect]
     Active Substance: DEXAMETHASONE
     Indication: PAIN
     Dosage: UNK
     Route: 048
  8. DEXAMETHASONE. [Suspect]
     Active Substance: DEXAMETHASONE
     Dosage: 1 MG, UNK
     Route: 048
  9. OXYCODONE [Concomitant]
     Active Substance: OXYCODONE
     Indication: PAIN
     Dosage: 10 MG, BID (2 ? 10 MG)
     Route: 065
  10. KETOPROFEN. [Concomitant]
     Active Substance: KETOPROFEN
     Indication: PAIN
     Dosage: 150 MG, IN EVENING
     Route: 065
  11. MORPHINE [Suspect]
     Active Substance: MORPHINE
     Dosage: 40 MG, PRN
     Route: 048
  12. FENTANYL. [Suspect]
     Active Substance: FENTANYL
     Dosage: 50 UG/HR, UNK
     Route: 062
  13. FENTANYL. [Concomitant]
     Active Substance: FENTANYL
     Dosage: 800 UG, UNK
     Route: 002
  14. OXYCODONE [Concomitant]
     Active Substance: OXYCODONE
     Dosage: 80 MG, BID (EVERY 12 HOURS)
     Route: 065
  15. ZOLEDRONATE [Suspect]
     Active Substance: ZOLEDRONIC ACID
     Indication: METASTASES TO LUNG
     Route: 042
  16. FENTANYL. [Concomitant]
     Active Substance: FENTANYL
     Indication: PAIN
     Dosage: 600 UG, TID (AS NEEDED)
     Route: 002
  17. FENTANYL. [Suspect]
     Active Substance: FENTANYL
     Indication: PAIN
     Dosage: 100 UG/HR, UNK
     Route: 062
  18. OXYCODONE [Concomitant]
     Active Substance: OXYCODONE
     Dosage: 10 MG, (LIQUID PREPARATION OF ORAL)
     Route: 048
  19. MORPHINE [Suspect]
     Active Substance: MORPHINE
     Indication: PAIN
     Dosage: 20 MG, PRN
     Route: 048
  20. OXYCODONE [Concomitant]
     Active Substance: OXYCODONE
     Dosage: 80 MG, BID, EVERY 12 HOURS)

REACTIONS (8)
  - Renal impairment [Recovering/Resolving]
  - Diarrhoea [Recovering/Resolving]
  - Vomiting [Recovering/Resolving]
  - Drug ineffective [Unknown]
  - Tachycardia [Recovering/Resolving]
  - Blood pressure decreased [Recovering/Resolving]
  - Dyspnoea [Recovering/Resolving]
  - General physical health deterioration [Recovering/Resolving]
